FAERS Safety Report 23928049 (Version 2)
Quarter: 2025Q3

REPORT INFORMATION
  Report Type: Spontaneous
  Country: US (occurrence: US)
  Receive Date: 20240531
  Receipt Date: 20250703
  Transmission Date: 20251020
  Serious: No
  Sender: RADIUS PHARM
  Company Number: US-RADIUS HEALTH INC.-2023US003527

PATIENT
  Age: 60 Year
  Sex: Female

DRUGS (2)
  1. TYMLOS [Suspect]
     Active Substance: ABALOPARATIDE
     Indication: Senile osteoporosis
     Route: 058
     Dates: start: 20230602
  2. CALCIUM [Suspect]
     Active Substance: CALCIUM
     Indication: Supplementation therapy

REACTIONS (10)
  - Palpitations [Recovering/Resolving]
  - Headache [Unknown]
  - Orthostatic hypotension [Unknown]
  - Heart rate increased [Recovering/Resolving]
  - Heart rate irregular [Recovering/Resolving]
  - Nausea [Recovering/Resolving]
  - Muscular weakness [Not Recovered/Not Resolved]
  - Blood pressure decreased [Unknown]
  - Urine calcium increased [Recovered/Resolved]
  - Injection site bruising [Unknown]

NARRATIVE: CASE EVENT DATE: 20230602
